FAERS Safety Report 9384333 (Version 2)
Quarter: 2014Q1

REPORT INFORMATION
  Report Type: Report from Study
  Country: BR (occurrence: BR)
  Receive Date: 20130705
  Receipt Date: 20140224
  Transmission Date: 20141002
  Serious: Yes (Hospitalization, Other)
  Sender: FDA-Public Use
  Company Number: PHHY2013BR070482

PATIENT
  Sex: Female

DRUGS (6)
  1. SANDOSTATIN LAR [Suspect]
     Indication: ACROMEGALY
     Dosage: 30 MG, MONTHLY
     Dates: end: 20130606
  2. PARLODEL [Suspect]
     Dosage: UNK UKN, UNK
  3. METICORTEN [Concomitant]
     Dosage: 5 MG, UNK
  4. LEVOTHYROXINE [Concomitant]
     Indication: THYROID DISORDER
     Dosage: 1 DF, A DAY
  5. LEVOTHYROXINE [Concomitant]
     Dosage: 28 MG, A DAY
  6. PREDNISONE [Concomitant]
     Indication: HORMONE THERAPY
     Dosage: 5 MG, A DAY

REACTIONS (13)
  - Fall [Unknown]
  - Femur fracture [Recovering/Resolving]
  - Abasia [Unknown]
  - Thyroid neoplasm [Not Recovered/Not Resolved]
  - Hypothyroidism [Unknown]
  - Weight increased [Unknown]
  - Muscle twitching [Unknown]
  - Choking [Unknown]
  - Body height decreased [Unknown]
  - Bone disorder [Unknown]
  - Headache [Not Recovered/Not Resolved]
  - Abdominal pain [Unknown]
  - Thyroid disorder [Unknown]
